FAERS Safety Report 24543973 (Version 2)
Quarter: 2024Q4

REPORT INFORMATION
  Report Type: Spontaneous
  Country: US (occurrence: US)
  Receive Date: 20241024
  Receipt Date: 20241108
  Transmission Date: 20250114
  Serious: Yes (Hospitalization)
  Sender: TEVA
  Company Number: US-TEVA-VS-3255047

PATIENT
  Age: 50 Year
  Sex: Female

DRUGS (2)
  1. HYDROMORPHONE [Suspect]
     Active Substance: HYDROMORPHONE
     Indication: Analgesic therapy
     Dosage: AS NEEDED (196 MORPHINE MILI-EQUIVALENTS)
     Route: 065
  2. OXYCODONE [Suspect]
     Active Substance: OXYCODONE
     Indication: Myelopathy
     Dosage: AS NEEDED (20 MORPHINE MILI-EQUIVALENTS)
     Route: 065

REACTIONS (4)
  - Aspiration [Recovering/Resolving]
  - Pneumothorax [Recovering/Resolving]
  - Empyema [Recovering/Resolving]
  - Staphylococcal infection [Recovering/Resolving]
